FAERS Safety Report 9773744 (Version 2)
Quarter: 2014Q1

REPORT INFORMATION
  Report Type: Spontaneous
  Country: JP (occurrence: JP)
  Receive Date: 20131219
  Receipt Date: 20140121
  Transmission Date: 20141002
  Serious: Yes (Hospitalization, Other)
  Sender: FDA-Public Use
  Company Number: JP-ABBVIE-13P-087-1181245-00

PATIENT
  Age: 84 Year
  Sex: Male
  Weight: 57 kg

DRUGS (16)
  1. LEUPLIN FOR INJECTION DEPOT KIT 3.75 [Suspect]
     Indication: PROSTATE CANCER
     Route: 058
     Dates: start: 20131202
  2. AMIODARONE [Suspect]
     Indication: VENTRICULAR TACHYCARDIA
     Dosage: REGIMEN#1
     Route: 048
  3. CASODEX [Suspect]
     Indication: PROSTATE CANCER
     Dosage: REGIMEN #1
     Route: 048
     Dates: start: 20131118
  4. MUCOSTA [Concomitant]
     Indication: PRODUCT USED FOR UNKNOWN INDICATION
  5. MICARDIS [Concomitant]
     Indication: PRODUCT USED FOR UNKNOWN INDICATION
  6. LASIX [Concomitant]
     Indication: PRODUCT USED FOR UNKNOWN INDICATION
  7. PANAPIDIN [Concomitant]
     Indication: PRODUCT USED FOR UNKNOWN INDICATION
  8. WARFARIN POTASSIUM [Concomitant]
     Indication: PRODUCT USED FOR UNKNOWN INDICATION
  9. ATORVASTATIN CALCIUM [Concomitant]
     Indication: PRODUCT USED FOR UNKNOWN INDICATION
  10. URSO [Concomitant]
     Indication: PRODUCT USED FOR UNKNOWN INDICATION
  11. PLETAAL [Concomitant]
     Indication: PRODUCT USED FOR UNKNOWN INDICATION
  12. FLIVAS [Concomitant]
     Indication: PRODUCT USED FOR UNKNOWN INDICATION
  13. EVIPROSTAT DB(CHIMAPHILA UMBELLATA, EQUISETUM ARVENSE) [Concomitant]
     Indication: PRODUCT USED FOR UNKNOWN INDICATION
  14. TICLOPIDINE HYDROCHLORIDE [Concomitant]
     Indication: PRODUCT USED FOR UNKNOWN INDICATION
  15. CARVEDILOL [Concomitant]
     Indication: PRODUCT USED FOR UNKNOWN INDICATION
  16. THYROID [Concomitant]
     Indication: PRODUCT USED FOR UNKNOWN INDICATION

REACTIONS (1)
  - Interstitial lung disease [Recovered/Resolved with Sequelae]
